FAERS Safety Report 20620790 (Version 46)
Quarter: 2025Q1

REPORT INFORMATION
  Report Type: Report from Study
  Country: US (occurrence: US)
  Receive Date: 20220322
  Receipt Date: 20250314
  Transmission Date: 20250408
  Serious: Yes (Hospitalization, Other)
  Sender: TAKEDA
  Company Number: US-TAKEDA-US202009917

PATIENT
  Age: 65 Year
  Sex: Female
  Weight: 55 kg

DRUGS (76)
  1. HUMAN IMMUNOGLOBULIN G\HYALURONIDASE RECOMBINANT HUMAN [Suspect]
     Active Substance: HUMAN IMMUNOGLOBULIN G\HYALURONIDASE (HUMAN RECOMBINANT)
     Indication: Immunodeficiency common variable
     Dosage: 30 GRAM, Q4WEEKS
     Dates: start: 20160516
  2. HUMAN IMMUNOGLOBULIN G\HYALURONIDASE RECOMBINANT HUMAN [Suspect]
     Active Substance: HUMAN IMMUNOGLOBULIN G\HYALURONIDASE (HUMAN RECOMBINANT)
     Indication: Selective IgA immunodeficiency
     Dosage: 30 GRAM, Q4WEEKS
     Dates: start: 20160524
  3. HUMAN IMMUNOGLOBULIN G\HYALURONIDASE RECOMBINANT HUMAN [Suspect]
     Active Substance: HUMAN IMMUNOGLOBULIN G\HYALURONIDASE (HUMAN RECOMBINANT)
     Indication: Selective IgG subclass deficiency
     Dosage: 30 GRAM, Q4WEEKS
     Dates: start: 20160607
  4. HUMAN IMMUNOGLOBULIN G\HYALURONIDASE RECOMBINANT HUMAN [Suspect]
     Active Substance: HUMAN IMMUNOGLOBULIN G\HYALURONIDASE (HUMAN RECOMBINANT)
     Indication: Primary immunodeficiency syndrome
     Dosage: 30 GRAM, Q4WEEKS
     Dates: start: 20161027
  5. HUMAN IMMUNOGLOBULIN G\HYALURONIDASE RECOMBINANT HUMAN [Suspect]
     Active Substance: HUMAN IMMUNOGLOBULIN G\HYALURONIDASE (HUMAN RECOMBINANT)
     Indication: Immunodeficiency
     Dosage: 30 GRAM, Q4WEEKS
     Dates: start: 20200524
  6. HUMAN IMMUNOGLOBULIN G\HYALURONIDASE RECOMBINANT HUMAN [Suspect]
     Active Substance: HUMAN IMMUNOGLOBULIN G\HYALURONIDASE (HUMAN RECOMBINANT)
     Dosage: 30 GRAM, Q4WEEKS
     Dates: start: 20200630
  7. HUMAN IMMUNOGLOBULIN G\HYALURONIDASE RECOMBINANT HUMAN [Suspect]
     Active Substance: HUMAN IMMUNOGLOBULIN G\HYALURONIDASE (HUMAN RECOMBINANT)
     Dosage: 30 GRAM, Q4WEEKS
  8. HUMAN IMMUNOGLOBULIN G\HYALURONIDASE RECOMBINANT HUMAN [Suspect]
     Active Substance: HUMAN IMMUNOGLOBULIN G\HYALURONIDASE (HUMAN RECOMBINANT)
     Dosage: 30 GRAM, Q4WEEKS
     Dates: start: 20231109
  9. HUMAN IMMUNOGLOBULIN G\HYALURONIDASE RECOMBINANT HUMAN [Suspect]
     Active Substance: HUMAN IMMUNOGLOBULIN G\HYALURONIDASE (HUMAN RECOMBINANT)
  10. HUMAN IMMUNOGLOBULIN G\HYALURONIDASE RECOMBINANT HUMAN [Suspect]
     Active Substance: HUMAN IMMUNOGLOBULIN G\HYALURONIDASE (HUMAN RECOMBINANT)
     Dosage: 30 GRAM, MONTHLY
  11. HUMAN IMMUNOGLOBULIN G\HYALURONIDASE RECOMBINANT HUMAN [Suspect]
     Active Substance: HUMAN IMMUNOGLOBULIN G\HYALURONIDASE (HUMAN RECOMBINANT)
     Dosage: 30 GRAM, Q4WEEKS
  12. GAMMAGARD LIQUID [Suspect]
     Active Substance: HUMAN IMMUNOGLOBULIN G
     Indication: Immunodeficiency
     Dosage: 30 GRAM, Q4WEEKS
     Dates: start: 20231031
  13. GAMMAGARD LIQUID [Suspect]
     Active Substance: HUMAN IMMUNOGLOBULIN G
     Dosage: 30 GRAM, Q4WEEKS
     Dates: start: 20231113
  14. BACITRACIN [Suspect]
     Active Substance: BACITRACIN
     Indication: Product used for unknown indication
  15. DIPHENHYDRAMINE [Concomitant]
     Active Substance: DIPHENHYDRAMINE
  16. ESOMEPRAZOLE MAGNESIUM [Concomitant]
     Active Substance: ESOMEPRAZOLE MAGNESIUM
  17. HYDRALAZINE HCL [Concomitant]
     Active Substance: HYDRALAZINE HYDROCHLORIDE
  18. ACIDOPHILUS [Concomitant]
     Active Substance: LACTOBACILLUS ACIDOPHILUS
  19. EPINEPHRINE [Concomitant]
     Active Substance: EPINEPHRINE
  20. ALLEGRA ALLERGY [Concomitant]
     Active Substance: FEXOFENADINE HYDROCHLORIDE
  21. DYMISTA [Concomitant]
     Active Substance: AZELASTINE HYDROCHLORIDE\FLUTICASONE PROPIONATE
  22. RESTASIS [Concomitant]
     Active Substance: CYCLOSPORINE
  23. IBUPROFEN [Concomitant]
     Active Substance: IBUPROFEN
  24. Calcium plus d3 [Concomitant]
  25. ACETAMINOPHEN [Concomitant]
     Active Substance: ACETAMINOPHEN
  26. SODIUM CHLORIDE [Concomitant]
     Active Substance: SODIUM CHLORIDE
  27. ONDANSETRON [Concomitant]
     Active Substance: ONDANSETRON
  28. AMBIEN [Concomitant]
     Active Substance: ZOLPIDEM TARTRATE
  29. CEFUROXIME [Concomitant]
     Active Substance: CEFUROXIME
  30. CALCIUM CARBONATE [Concomitant]
     Active Substance: CALCIUM CARBONATE
  31. LETROZOLE [Concomitant]
     Active Substance: LETROZOLE
  32. DULOXETINE HYDROCHLORIDE [Concomitant]
     Active Substance: DULOXETINE HYDROCHLORIDE
  33. ALBUTEROL SULFATE [Concomitant]
     Active Substance: ALBUTEROL SULFATE
  34. AZELASTINE HYDROCHLORIDE [Concomitant]
     Active Substance: AZELASTINE HYDROCHLORIDE
  35. RISEDRONATE SODIUM [Concomitant]
     Active Substance: RISEDRONATE SODIUM
  36. LINZESS [Concomitant]
     Active Substance: LINACLOTIDE
  37. FEXOFENADINE [Concomitant]
     Active Substance: FEXOFENADINE HYDROCHLORIDE
  38. LISINOPRIL AND HYDROCHLOROTHIAZIDE [Concomitant]
     Active Substance: HYDROCHLOROTHIAZIDE\LISINOPRIL
  39. LIDOCAINE [Concomitant]
     Active Substance: LIDOCAINE
  40. ACYCLOVIR [Concomitant]
     Active Substance: ACYCLOVIR
  41. ADVAIR HFA [Concomitant]
     Active Substance: FLUTICASONE PROPIONATE\SALMETEROL XINAFOATE
  42. MIRALAX [Concomitant]
     Active Substance: POLYETHYLENE GLYCOL 3350
  43. AMLODIPINE BESYLATE [Concomitant]
     Active Substance: AMLODIPINE BESYLATE
  44. ZOFRAN [Concomitant]
     Active Substance: ONDANSETRON HYDROCHLORIDE
  45. TOBRAMYCIN AND DEXAMETHASONE [Concomitant]
     Active Substance: DEXAMETHASONE\TOBRAMYCIN
  46. HYDRALAZINE [Concomitant]
     Active Substance: HYDRALAZINE HYDROCHLORIDE
  47. ESOMEPRAZOLE [Concomitant]
     Active Substance: ESOMEPRAZOLE
  48. AMLODIPINE [Concomitant]
     Active Substance: AMLODIPINE BESYLATE
  49. PATANOL [Concomitant]
     Active Substance: OLOPATADINE HYDROCHLORIDE
  50. PROAIR HFA [Concomitant]
     Active Substance: ALBUTEROL SULFATE
  51. BONIVA [Concomitant]
     Active Substance: IBANDRONATE SODIUM
  52. FEMARA [Concomitant]
     Active Substance: LETROZOLE
  53. PROVENTIL HFA [Concomitant]
     Active Substance: ALBUTEROL SULFATE
  54. PROVENTIL [Concomitant]
     Active Substance: ALBUTEROL
  55. ALLEGRA [Concomitant]
     Active Substance: FEXOFENADINE HYDROCHLORIDE
  56. CALCIUM [Concomitant]
     Active Substance: CALCIUM
  57. TOBRAMYCIN [Concomitant]
     Active Substance: TOBRAMYCIN
  58. LISINOPRIL [Concomitant]
     Active Substance: LISINOPRIL
  59. LEVOTHYROXINE SODIUM [Concomitant]
     Active Substance: LEVOTHYROXINE SODIUM
  60. FEXOFENADINE HYDROCHLORIDE [Concomitant]
     Active Substance: FEXOFENADINE HYDROCHLORIDE
  61. HYDROCHLOROTHIAZIDE [Concomitant]
     Active Substance: HYDROCHLOROTHIAZIDE
  62. SODIUM CHLORIDE [Concomitant]
     Active Substance: SODIUM CHLORIDE
  63. DULOXETINE [Concomitant]
     Active Substance: DULOXETINE
  64. AZELASTINE [Concomitant]
     Active Substance: AZELASTINE
  65. VITAMINS [Concomitant]
     Active Substance: VITAMINS
  66. PROLIA [Concomitant]
     Active Substance: DENOSUMAB
  67. ADVIL [Concomitant]
     Active Substance: IBUPROFEN
  68. PROMETHAZINE HYDROCHLORIDE [Concomitant]
     Active Substance: PROMETHAZINE HYDROCHLORIDE
  69. LEVOCETIRIZINE DIHYDROCHLORIDE [Concomitant]
     Active Substance: LEVOCETIRIZINE DIHYDROCHLORIDE
  70. BACTRIM [Concomitant]
     Active Substance: SULFAMETHOXAZOLE\TRIMETHOPRIM
  71. PANTOPRAZOLE SODIUM [Concomitant]
     Active Substance: PANTOPRAZOLE SODIUM
  72. MUPIROCIN [Concomitant]
     Active Substance: MUPIROCIN
  73. DIPHENHYDRAMINE HYDROCHLORIDE [Concomitant]
     Active Substance: DIPHENHYDRAMINE HYDROCHLORIDE
  74. KETOROLAC TROMETHAMINE [Concomitant]
     Active Substance: KETOROLAC TROMETHAMINE
  75. MELATONIN [Concomitant]
     Active Substance: MELATONIN
  76. DESLORATADINE [Concomitant]
     Active Substance: DESLORATADINE

REACTIONS (71)
  - Face injury [Unknown]
  - Joint injury [Not Recovered/Not Resolved]
  - Lower limb fracture [Unknown]
  - COVID-19 pneumonia [Unknown]
  - Anaemia of malignant disease [Unknown]
  - Hypothyroidism [Unknown]
  - Breast cancer [Unknown]
  - Optic atrophy [Unknown]
  - Retinal oedema [Unknown]
  - Patella fracture [Unknown]
  - Fall [Unknown]
  - Cranial nerve injury [Unknown]
  - Hypokinesia [Unknown]
  - Multiple allergies [Unknown]
  - Quality of life decreased [Unknown]
  - Sinusitis [Recovering/Resolving]
  - Osteoporosis [Unknown]
  - Intervertebral disc degeneration [Unknown]
  - Oral herpes [Unknown]
  - Nasopharyngitis [Unknown]
  - Seasonal allergy [Unknown]
  - Sleep disorder [Unknown]
  - Illness [Unknown]
  - Viral pharyngitis [Unknown]
  - Gait inability [Recovered/Resolved]
  - Device issue [Unknown]
  - Insurance issue [Unknown]
  - Irritable bowel syndrome [Unknown]
  - Constipation [Unknown]
  - Infusion site rash [Unknown]
  - Infusion related reaction [Unknown]
  - Upper respiratory tract infection [Unknown]
  - Feeding disorder [Unknown]
  - Food allergy [Unknown]
  - Arthritis infective [Not Recovered/Not Resolved]
  - Eye disorder [Unknown]
  - Dry eye [Unknown]
  - Arthropathy [Unknown]
  - Suspected COVID-19 [Unknown]
  - Body temperature abnormal [Unknown]
  - Vision blurred [Unknown]
  - Thyroid disorder [Unknown]
  - Muscle spasms [Recovered/Resolved]
  - Asthma [Unknown]
  - Abdominal distension [Unknown]
  - Malaise [Not Recovered/Not Resolved]
  - Pain in extremity [Recovered/Resolved]
  - Lethargy [Unknown]
  - Diarrhoea [Unknown]
  - Abdominal pain upper [Unknown]
  - Blood pressure increased [Unknown]
  - Headache [Unknown]
  - Back pain [Unknown]
  - Fatigue [Unknown]
  - Chills [Unknown]
  - Dizziness [Unknown]
  - Vomiting [Unknown]
  - Pruritus [Unknown]
  - Nausea [Unknown]
  - Gastrointestinal disorder [Not Recovered/Not Resolved]
  - Musculoskeletal discomfort [Unknown]
  - Ligament sprain [Unknown]
  - Adrenal disorder [Unknown]
  - Skin laceration [Unknown]
  - Wound infection [Unknown]
  - Product dose omission issue [Unknown]
  - Incorrect disposal of product [Unknown]
  - Product use issue [Unknown]
  - Inappropriate schedule of product administration [Unknown]
  - Blood pressure fluctuation [Unknown]
  - Dyspnoea [Unknown]

NARRATIVE: CASE EVENT DATE: 20200604
